FAERS Safety Report 9132357 (Version 1)
Quarter: 2013Q1

REPORT INFORMATION
  Report Type: Report from Study
  Country: FR (occurrence: FR)
  Receive Date: 20130208
  Receipt Date: 20130208
  Transmission Date: 20140127
  Serious: Yes (Hospitalization)
  Sender: FDA-Public Use
  Company Number: FR-PFIZER INC-2013043224

PATIENT
  Age: 59 Year
  Sex: Male

DRUGS (6)
  1. BLINDED NO SUBJECT DRUG [Suspect]
     Indication: HEPATIC CANCER
     Dosage: UNK
     Dates: start: 20110530
  2. BLINDED PLACEBO [Suspect]
     Indication: HEPATIC CANCER
     Dosage: UNK
     Dates: start: 20110530
  3. SUNITINIB MALATE [Suspect]
     Indication: HEPATIC CANCER
     Dosage: UNK
     Dates: start: 20110530
  4. DOXORUBICIN HCL [Suspect]
     Indication: HEPATIC CANCER
     Dosage: UNK
     Dates: start: 20110607
  5. CRESTOR [Concomitant]
     Indication: HYPERCHOLESTEROLAEMIA
     Dosage: 1 DF, 1X/DAY
  6. FLUCONAZOLE [Concomitant]
     Indication: ANTIFUNGAL TREATMENT
     Dosage: 1 DF, 3X/DAY

REACTIONS (5)
  - Pilonidal cyst [Not Recovered/Not Resolved]
  - Ascites [Not Recovered/Not Resolved]
  - Neutropenia [Recovered/Resolved]
  - Thrombocytopenia [Recovered/Resolved]
  - Haemoptysis [Recovered/Resolved]
